FAERS Safety Report 9601152 (Version 2)
Quarter: 2013Q4

REPORT INFORMATION
  Report Type: Spontaneous
  Country: US (occurrence: US)
  Receive Date: 20131004
  Receipt Date: 20131004
  Transmission Date: 20140711
  Serious: No
  Sender: FDA-Public Use
  Company Number: US-AMGEN-USASP2013033111

PATIENT
  Age: 49 Year
  Sex: Female

DRUGS (9)
  1. ENBREL [Suspect]
     Indication: RHEUMATOID ARTHRITIS
     Dosage: 50 MG, QWK
     Route: 058
     Dates: start: 20130429, end: 201305
  2. NEURONTIN [Concomitant]
     Dosage: 300 MG, UNK
  3. BENTYL [Concomitant]
     Dosage: 20 MG, UNK
  4. PREMARIN [Concomitant]
     Dosage: 25 MG, UNK
  5. MICARDIS [Concomitant]
     Dosage: 20 MG, UNK
  6. MOBIC [Concomitant]
     Dosage: 15 MG, UNK
  7. PLAQUENIL                          /00072602/ [Concomitant]
     Dosage: 200 MG, UNK
  8. APAP W/HYDROCODONE [Concomitant]
     Dosage: 7.5-325
  9. CELEXA                             /00582602/ [Concomitant]
     Dosage: 10 MG, UNK

REACTIONS (4)
  - Injection site pain [Unknown]
  - Injection site erythema [Recovered/Resolved]
  - Injection site warmth [Recovered/Resolved]
  - Injection site pruritus [Recovered/Resolved]
